FAERS Safety Report 5764306-6 (Version None)
Quarter: 2008Q2

REPORT INFORMATION
  Report Type: 
  Country: None (occurrence: None)
  Receive Date: 20080610
  Receipt Date: 20080422
  Transmission Date: 20081010
  Serious: No
  Sender: FDA-Public Use
  Company Number: US-BOEHRINGER INGELHEIM GMBH, GERMANY-2008-BP-06321BP

PATIENT
  Sex: Female

DRUGS (4)
  1. MICARDIS [Suspect]
  2. COREG [Concomitant]
  3. TRICOR [Concomitant]
  4. SYNTHROID [Concomitant]

REACTIONS (1)
  - STOMACH DISCOMFORT [None]
